FAERS Safety Report 25097654 (Version 1)
Quarter: 2025Q1

REPORT INFORMATION
  Report Type: Other
  Country: CH (occurrence: CH)
  Receive Date: 20250320
  Receipt Date: 20250320
  Transmission Date: 20250408
  Serious: Yes (Hospitalization, Other)
  Sender: ANI
  Company Number: CH-ANIPHARMA-016027

PATIENT
  Sex: Female

DRUGS (1)
  1. MISOPROSTOL [Suspect]
     Active Substance: MISOPROSTOL
     Indication: Labour induction
     Route: 048

REACTIONS (2)
  - Premature separation of placenta [Unknown]
  - Maternal exposure during delivery [Unknown]
